FAERS Safety Report 4757234-6 (Version None)
Quarter: 2005Q3

REPORT INFORMATION
  Report Type: 
  Country: None (occurrence: None)
  Receive Date: 20050829
  Receipt Date: 20050818
  Transmission Date: 20060218
  Serious: Yes (Disabling)
  Sender: FDA-Public Use
  Company Number: 6016700

PATIENT
  Age: 75 Year
  Sex: Male

DRUGS (8)
  1. CARDICOR (BISOPROLOL) [Suspect]
     Indication: MYOCARDIAL ISCHAEMIA
     Dosage: SEE IMAGE
     Route: 048
     Dates: start: 20050712, end: 20050731
  2. RAMIPRIL [Concomitant]
  3. ATORVASTATIN CALCIUM [Concomitant]
  4. TEMAZEPAM [Concomitant]
  5. DIGOXIN [Concomitant]
  6. AMITRIPTYLINE HCL [Concomitant]
  7. ISMO (ISOSORBIDE MONONITRATE0 [Concomitant]
  8. ASPIRIN [Concomitant]

REACTIONS (2)
  - ANGINA PECTORIS [None]
  - CONDITION AGGRAVATED [None]
